FAERS Safety Report 9862364 (Version 2)
Quarter: 2014Q1

REPORT INFORMATION
  Report Type: Spontaneous
  Country: IT (occurrence: IT)
  Receive Date: 20140203
  Receipt Date: 20140220
  Transmission Date: 20141002
  Serious: Yes (Hospitalization)
  Sender: FDA-Public Use
  Company Number: IT-PFIZER INC-2014030913

PATIENT
  Age: 35 Year
  Sex: Male

DRUGS (9)
  1. CISPLATIN [Suspect]
     Indication: SEMINOMA
     Dosage: 3 CYCLES, UNK
     Dates: start: 201108
  2. ETOPOSIDE [Suspect]
     Indication: SEMINOMA
     Dosage: 3 CYCLES, UNK
     Dates: start: 201108
  3. BLEOMYCIN [Suspect]
     Indication: SEMINOMA
     Dosage: 3 CYCLES, UNK
     Dates: start: 201108
  4. EMTRICITABINE/TENOFOVIR DISOPROXIL FUMARATE [Suspect]
     Indication: HIV INFECTION
     Dosage: UNK
     Dates: start: 201203
  5. DARUNAVIR/RITONAVIR [Suspect]
     Indication: HIV INFECTION
     Dosage: UNK
     Dates: start: 201203
  6. LOW MOLECULAR WEIGHT HEPARIN [Concomitant]
     Indication: THROMBOSIS PROPHYLAXIS
     Dosage: UNK
  7. CEFTRIAXONE [Concomitant]
     Indication: HERPES SIMPLEX
  8. FLUCONAZOLE [Concomitant]
     Indication: HERPES SIMPLEX
  9. ACICLOVIR [Concomitant]
     Indication: HERPES SIMPLEX

REACTIONS (2)
  - Rash pustular [Recovered/Resolved]
  - Immune system disorder [Recovering/Resolving]
